FAERS Safety Report 13139324 (Version 1)
Quarter: 2017Q1

REPORT INFORMATION
  Report Type: Spontaneous
  Country: US (occurrence: US)
  Receive Date: 20170123
  Receipt Date: 20170123
  Transmission Date: 20170428
  Serious: Yes (Hospitalization)
  Sender: FDA-Public Use
  Company Number: US-NORTHSTAR HEALTHCARE HOLDINGS-US-2017NSR000038

PATIENT
  Age: 76 Year
  Sex: Female

DRUGS (1)
  1. BACLOFEN. [Suspect]
     Active Substance: BACLOFEN
     Indication: PRODUCT USED FOR UNKNOWN INDICATION
     Dosage: INGESTED NEARLY 40 TABS

REACTIONS (6)
  - Unresponsive to stimuli [Recovering/Resolving]
  - Hypotension [Unknown]
  - Overdose [Unknown]
  - Suicide attempt [Unknown]
  - Seizure [Recovering/Resolving]
  - Bradycardia [Recovering/Resolving]
